FAERS Safety Report 14285318 (Version 1)
Quarter: 2017Q4

REPORT INFORMATION
  Report Type: Spontaneous
  Country: US (occurrence: US)
  Receive Date: 20171214
  Receipt Date: 20171214
  Transmission Date: 20180321
  Serious: No
  Sender: FDA-Public Use
  Company Number: US-PFIZER INC-2017526352

PATIENT
  Age: 85 Year
  Sex: Female
  Weight: 65.77 kg

DRUGS (2)
  1. NORVASC [Suspect]
     Active Substance: AMLODIPINE BESYLATE
     Dosage: 10 MG, 1X/DAY
     Route: 048
  2. NORVASC [Suspect]
     Active Substance: AMLODIPINE BESYLATE
     Indication: HYPERTENSION
     Dosage: 10 MG, 1X/DAY
     Route: 048

REACTIONS (7)
  - Heart rate increased [Unknown]
  - Blood pressure inadequately controlled [Not Recovered/Not Resolved]
  - Intentional product use issue [Unknown]
  - Muscle spasms [Unknown]
  - Insomnia [Unknown]
  - Cardiac disorder [Unknown]
  - Chest pain [Recovered/Resolved]

NARRATIVE: CASE EVENT DATE: 201710
